FAERS Safety Report 8927525 (Version 1)
Quarter: 2012Q4

REPORT INFORMATION
  Report Type: 
  Country: US (occurrence: US)
  Receive Date: 20121127
  Receipt Date: 20121127
  Transmission Date: 20130627
  Serious: Yes (Hospitalization, Disabling, Other)
  Sender: FDA-Public Use
  Company Number: US-US-EMD SERONO, INC.-7177292

PATIENT
  Age: 51 Year
  Sex: Female

DRUGS (1)
  1. REBIF [Suspect]
     Indication: PRODUCT USED FOR UNKNOWN INDICATION
     Dates: start: 20120223, end: 20121108

REACTIONS (7)
  - Concussion [Unknown]
  - Head injury [Unknown]
  - Fall [Unknown]
  - Blood sodium decreased [Unknown]
  - Palpitations [Unknown]
  - Mobility decreased [Not Recovered/Not Resolved]
  - Convulsion [Unknown]
